FAERS Safety Report 22802042 (Version 2)
Quarter: 2024Q1

REPORT INFORMATION
  Report Type: Spontaneous
  Country: FR (occurrence: FR)
  Receive Date: 20230809
  Receipt Date: 20240222
  Transmission Date: 20240409
  Serious: Yes (Other)
  Sender: FDA-Public Use
  Company Number: FR-AFSSAPS-AN2023000997

PATIENT
  Age: 56 Year
  Sex: Female
  Weight: 65 kg

DRUGS (13)
  1. APREPITANT [Suspect]
     Active Substance: APREPITANT
     Indication: Chemotherapy side effect prophylaxis
     Dosage: 150 MILLIGRAM, CYCLICAL
     Route: 048
     Dates: start: 20230628, end: 20230628
  2. CIMETIDINE [Suspect]
     Active Substance: CIMETIDINE
     Indication: Chemotherapy side effect prophylaxis
     Dosage: 200 MILLIGRAM, CYCLICAL
     Route: 048
     Dates: start: 20230628, end: 20230628
  3. ONDANSETRON [Suspect]
     Active Substance: ONDANSETRON
     Indication: Chemotherapy side effect prophylaxis
     Dosage: 8 MILLIGRAM, CYCLICAL
     Route: 065
     Dates: start: 20230628, end: 20230628
  4. PACLITAXEL [Suspect]
     Active Substance: PACLITAXEL
     Indication: Cervix carcinoma
     Dosage: 300 MILLIGRAM (TOTAL)
     Route: 042
     Dates: start: 20230628, end: 20230628
  5. AVASTIN [Suspect]
     Active Substance: BEVACIZUMAB
     Indication: Cervix carcinoma
     Dosage: 950 MILLIGRAM (TOTAL)
     Route: 042
     Dates: start: 20230628, end: 20230628
  6. CARBOPLATIN [Suspect]
     Active Substance: CARBOPLATIN
     Indication: Cervix carcinoma
     Dosage: 610 MILLIGRAM (TOTAL)
     Route: 042
     Dates: start: 20230628, end: 20230628
  7. DEXCHLORPHENIRAMINE [Suspect]
     Active Substance: DEXCHLORPHENIRAMINE
     Indication: Chemotherapy side effect prophylaxis
     Dosage: 5 MILLIGRAM, CYCLICAL
     Route: 065
     Dates: start: 20230628, end: 20230628
  8. KEYTRUDA [Suspect]
     Active Substance: PEMBROLIZUMAB
     Indication: Cervix carcinoma
     Dosage: 200 MILLIGRAM (TOTAL)
     Route: 042
     Dates: start: 20230628, end: 20230628
  9. VOGALENE [Suspect]
     Active Substance: METOPIMAZINE
     Indication: Vomiting
     Dosage: 1 DOSAGE FORM, AS NECESSARY
     Route: 048
     Dates: start: 20230628, end: 20230701
  10. HERBALS\HOMEOPATHICS\PASSIFLORA INCARNATA FLOWER [Concomitant]
     Active Substance: HERBALS\HOMEOPATHICS\PASSIFLORA INCARNATA FLOWER
     Indication: Product used for unknown indication
     Dosage: UNK
     Route: 048
  11. NEBIVOLOL [Concomitant]
     Active Substance: NEBIVOLOL
     Indication: Product used for unknown indication
     Dosage: 2.5 MILLIGRAM, ONCE A DAY
     Route: 048
  12. ALPRAZOLAM [Concomitant]
     Active Substance: ALPRAZOLAM
     Indication: Product used for unknown indication
     Dosage: UNK
     Route: 048
  13. LEVOTHYROXINE [Concomitant]
     Active Substance: LEVOTHYROXINE\LEVOTHYROXINE SODIUM
     Indication: Product used for unknown indication
     Dosage: 652 MICROGRAM, EVERY WEEK
     Route: 048

REACTIONS (3)
  - Erythema [Recovering/Resolving]
  - Rash macular [Recovering/Resolving]
  - Neutropenia [Recovered/Resolved]

NARRATIVE: CASE EVENT DATE: 20230702
